FAERS Safety Report 7056404-4 (Version None)
Quarter: 2010Q4

REPORT INFORMATION
  Report Type: 
  Country: None (occurrence: None)
  Receive Date: 20101021
  Receipt Date: 20101012
  Transmission Date: 20110411
  Serious: Yes (Hospitalization)
  Sender: FDA-Public Use
  Company Number: Z0005260A

PATIENT
  Age: 56 Year
  Sex: Male
  Weight: 90.9 kg

DRUGS (4)
  1. OFATUMUMAB [Suspect]
     Indication: LYMPHOMA
     Route: 042
     Dates: start: 20100730, end: 20100805
  2. DEXAMETHASONE [Suspect]
     Indication: LYMPHOMA
     Route: 042
     Dates: start: 20100730, end: 20100802
  3. CISPLATIN [Suspect]
     Indication: LYMPHOMA
     Dosage: 100MGM2 PER DAY
     Route: 042
     Dates: start: 20100730, end: 20100731
  4. CYTARABINE [Suspect]
     Indication: LYMPHOMA
     Route: 042
     Dates: start: 20100731, end: 20100801

REACTIONS (1)
  - THROMBOCYTOPENIA [None]
